FAERS Safety Report 10215117 (Version 21)
Quarter: 2015Q3

REPORT INFORMATION
  Report Type: Report from Study
  Country: CA (occurrence: CA)
  Receive Date: 20140603
  Receipt Date: 20150917
  Transmission Date: 20151125
  Serious: Yes (Other)
  Sender: FDA-Public Use
  Company Number: CA-ABBVIE-14P-028-1230114-00

PATIENT
  Age: 56 Year
  Sex: Female

DRUGS (6)
  1. PREDNISONE. [Suspect]
     Active Substance: PREDNISONE
     Indication: RASH
     Route: 065
  2. ATENOLOL. [Concomitant]
     Active Substance: ATENOLOL
     Indication: BLOOD PRESSURE MEASUREMENT
     Route: 048
     Dates: start: 2014
  3. HUMIRA [Suspect]
     Active Substance: ADALIMUMAB
     Indication: UVEITIS
     Route: 058
     Dates: start: 20130926
  4. ATENOLOL. [Concomitant]
     Active Substance: ATENOLOL
     Route: 048
     Dates: start: 2014
  5. PREDNISONE. [Suspect]
     Active Substance: PREDNISONE
     Indication: EYE INFLAMMATION
     Route: 065
  6. PREDNISONE. [Suspect]
     Active Substance: PREDNISONE
     Indication: THERAPY CHANGE
     Route: 065
     Dates: start: 201309

REACTIONS (27)
  - Tenderness [Unknown]
  - Local swelling [Unknown]
  - Nodule [Unknown]
  - Rash macular [Not Recovered/Not Resolved]
  - Pain [Unknown]
  - Squamous cell carcinoma of skin [Recovered/Resolved]
  - Dizziness postural [Not Recovered/Not Resolved]
  - Skin lesion [Unknown]
  - Renal impairment [Unknown]
  - Eye inflammation [Recovering/Resolving]
  - Laboratory test abnormal [Not Recovered/Not Resolved]
  - Sarcoidosis [Unknown]
  - Renal function test abnormal [Not Recovered/Not Resolved]
  - Fatigue [Not Recovered/Not Resolved]
  - Cancer pain [Unknown]
  - Hypotension [Not Recovered/Not Resolved]
  - Oedema [Not Recovered/Not Resolved]
  - Squamous cell carcinoma of skin [Not Recovered/Not Resolved]
  - Fall [Recovered/Resolved]
  - Chromaturia [Unknown]
  - Orthostatic hypotension [Not Recovered/Not Resolved]
  - Impaired healing [Unknown]
  - Blood creatinine increased [Not Recovered/Not Resolved]
  - Pain in extremity [Not Recovered/Not Resolved]
  - Rash erythematous [Not Recovered/Not Resolved]
  - Malaise [Not Recovered/Not Resolved]
  - Haemoglobin decreased [Unknown]

NARRATIVE: CASE EVENT DATE: 201309
